FAERS Safety Report 9168645 (Version 3)
Quarter: 2013Q2

REPORT INFORMATION
  Report Type: Spontaneous
  Country: US (occurrence: US)
  Receive Date: 20130315
  Receipt Date: 20130409
  Transmission Date: 20140414
  Serious: Yes (Other)
  Sender: FDA-Public Use
  Company Number: US-RB-050964-13

PATIENT
  Age: 13 Year
  Sex: Female

DRUGS (1)
  1. CLEARASIL PERFECTAWASH STARTER KIT [Suspect]
     Indication: ACNE
     Dosage: ONE TIME USE ONLY
     Route: 061
     Dates: start: 20130302

REACTIONS (6)
  - Chemical injury [Recovered/Resolved]
  - Wound secretion [Recovered/Resolved]
  - Erythema [Recovered/Resolved]
  - Pain of skin [Recovered/Resolved]
  - Photosensitivity reaction [Recovered/Resolved]
  - Swelling face [Recovered/Resolved]
